FAERS Safety Report 9210311 (Version 1)
Quarter: 2013Q2

REPORT INFORMATION
  Report Type: Report from Study
  Country: US (occurrence: US)
  Receive Date: 20130404
  Receipt Date: 20130404
  Transmission Date: 20140414
  Serious: Yes (Other)
  Sender: FDA-Public Use
  Company Number: US-ROCHE-1209766

PATIENT
  Age: 23 Month
  Sex: 0

DRUGS (2)
  1. BEVACIZUMAB [Suspect]
     Indication: GLIOMA
     Route: 065
  2. IRINOTECAN [Suspect]
     Indication: GLIOMA
     Route: 065

REACTIONS (2)
  - Gastrointestinal toxicity [Recovered/Resolved]
  - Hypertension [Recovered/Resolved]
